FAERS Safety Report 9008353 (Version 1)
Quarter: 2013Q1

REPORT INFORMATION
  Report Type: Spontaneous
  Country: FR (occurrence: FR)
  Receive Date: 20130111
  Receipt Date: 20130111
  Transmission Date: 20140127
  Serious: Yes (Hospitalization)
  Sender: FDA-Public Use
  Company Number: FR-BAYER-2013-001938

PATIENT
  Age: 84 Year
  Sex: Female

DRUGS (12)
  1. CIFLOX [Suspect]
     Dosage: UNK
     Route: 048
     Dates: start: 201206, end: 201206
  2. AUGMENTIN [Suspect]
     Dosage: UNK
     Route: 048
     Dates: start: 201205
  3. ROCEPHINE [Suspect]
     Dosage: UNK
     Dates: start: 201206, end: 201206
  4. TAVANIC [Suspect]
     Dosage: UNK
     Dates: start: 201206, end: 201206
  5. FORTUM [Suspect]
     Dosage: UNK
     Route: 048
     Dates: start: 201206, end: 201206
  6. COLIMYCINE [Suspect]
     Dosage: UNK
     Route: 055
     Dates: start: 20120621
  7. ZITHROMAX [Suspect]
     Dosage: 125 MG, BID
     Dates: start: 20120621
  8. LASILIX [Suspect]
     Dosage: 40 MG, QD
  9. ATACAND [Suspect]
  10. ATARAX [Suspect]
     Dosage: 25 MG, QD
     Route: 048
  11. TERBUTALINE [Suspect]
     Route: 055
  12. IPRATROPIUM BROMIDE [Suspect]
     Route: 055

REACTIONS (4)
  - Hepatitis cholestatic [Not Recovered/Not Resolved]
  - Renal failure acute [Recovered/Resolved]
  - Renal tubular necrosis [Recovered/Resolved]
  - Hyperkalaemia [Recovered/Resolved]
